FAERS Safety Report 8250062-9 (Version None)
Quarter: 2012Q1

REPORT INFORMATION
  Report Type: 
  Country: None (occurrence: None)
  Receive Date: 20120319
  Receipt Date: 20091030
  Transmission Date: 20120608
  Serious: Yes (Other)
  Sender: FDA-Public Use
  Company Number: PHEH2009US14727

PATIENT
  Age: 79 Year
  Sex: Female
  Weight: 73.5 kg

DRUGS (1)
  1. TEKTURNA HCT [Suspect]
     Dosage: ALIS300/HCT25MG/QD
     Dates: start: 20090511

REACTIONS (1)
  - BLOOD POTASSIUM INCREASED [None]
